FAERS Safety Report 9285690 (Version 2)
Quarter: 2013Q2

REPORT INFORMATION
  Report Type: Spontaneous
  Country: US (occurrence: US)
  Receive Date: 20130513
  Receipt Date: 20130513
  Transmission Date: 20140414
  Serious: Yes (Death)
  Sender: FDA-Public Use
  Company Number: US-JNJFOC-20130211569

PATIENT
  Sex: Female
  Weight: 63.5 kg

DRUGS (5)
  1. IMODIUM A-D CREAMY MINT [Suspect]
     Route: 048
  2. IMODIUM A-D CREAMY MINT [Suspect]
     Indication: DIARRHOEA
     Dosage: A FULL CAP ONCE, THEN A HALF CAP
     Route: 048
     Dates: start: 20130204, end: 20130211
  3. MULTIVITAMINS [Concomitant]
     Indication: ROUTINE HEALTH MAINTENANCE
     Route: 065
     Dates: start: 20120218
  4. NAPROXEN [Concomitant]
     Indication: ARTHRITIS
     Route: 065
     Dates: start: 20120218
  5. ASPIRIN [Concomitant]
     Indication: PROPHYLAXIS
     Route: 065
     Dates: start: 20110218

REACTIONS (2)
  - Death [Fatal]
  - Drug ineffective [Recovered/Resolved]
